FAERS Safety Report 8095397-8 (Version None)
Quarter: 2012Q1

REPORT INFORMATION
  Report Type: 
  Country: None (occurrence: None)
  Receive Date: 20120125
  Receipt Date: 20120116
  Transmission Date: 20120608
  Serious: Yes (Hospitalization, Other)
  Sender: FDA-Public Use
  Company Number: 2012SP003012

PATIENT
  Sex: Female

DRUGS (2)
  1. RIBAVIRIN [Suspect]
     Indication: HEPATITIS C
     Dosage: ;UNK;UNK
  2. PEGASYS [Suspect]
     Indication: HEPATITIS C
     Dosage: ;UNK;UNK

REACTIONS (6)
  - DISEASE RECURRENCE [None]
  - HEPATITIS C [None]
  - HYPOTENSION [None]
  - PNEUMONIA [None]
  - GASTROINTESTINAL DISORDER [None]
  - THROMBOSIS [None]
